FAERS Safety Report 20631392 (Version 1)
Quarter: 2022Q1

REPORT INFORMATION
  Report Type: Spontaneous
  Country: None (occurrence: DE)
  Receive Date: 20220324
  Receipt Date: 20220324
  Transmission Date: 20220423
  Serious: Yes (Death)
  Sender: FDA-Public Use
  Company Number: DE-MLV Pharma LLC-2127070

PATIENT
  Age: 81 Year
  Sex: Female

DRUGS (2)
  1. NITROFURANTOIN [Suspect]
     Active Substance: NITROFURANTOIN
     Indication: Dysuria
  2. CORTISONE (HYDROCORTISONE) [Suspect]
     Active Substance: HYDROCORTISONE
     Route: 065

REACTIONS (5)
  - Acute hepatic failure [Fatal]
  - Traumatic lung injury [Fatal]
  - Eosinophilia [Unknown]
  - Acute respiratory distress syndrome [Fatal]
  - Pulmonary fibrosis [Fatal]
